FAERS Safety Report 4352762-X (Version None)
Quarter: 2004Q2

REPORT INFORMATION
  Report Type: 
  Country: None (occurrence: None)
  Receive Date: 20040504
  Receipt Date: 20040311
  Transmission Date: 20050107
  Serious: Yes (Hospitalization)
  Sender: FDA-Public Use
  Company Number: JP-ROCHE-361724

PATIENT
  Age: 24 Month
  Sex: Male
  Weight: 9 kg

DRUGS (15)
  1. ROCEPHIN [Suspect]
     Indication: INFLUENZA
     Route: 041
     Dates: start: 20030819, end: 20030820
  2. ROCEPHIN [Suspect]
     Route: 041
     Dates: start: 20030821, end: 20030904
  3. CLAFORAN [Suspect]
     Indication: INFLUENZA
     Route: 042
     Dates: start: 20030906, end: 20030917
  4. CEFOTAX [Suspect]
     Indication: INFECTION
     Route: 042
     Dates: start: 20030813, end: 20030818
  5. GLOVENIN-I [Concomitant]
     Route: 042
     Dates: start: 20030813
  6. VICCILLIN [Concomitant]
     Indication: INFECTION
     Route: 042
     Dates: start: 20030813, end: 20030815
  7. PIPERACILLIN SODIUM [Concomitant]
     Indication: INFECTION
     Dosage: DESCRIBED AS TAIPERACILIN.
     Route: 042
     Dates: start: 20030815, end: 20030819
  8. BROACT [Concomitant]
     Indication: INFECTION
     Route: 042
     Dates: start: 20030818, end: 20030819
  9. ALEVIATIN [Concomitant]
     Indication: CONVULSION
     Route: 048
     Dates: start: 20030815, end: 20030819
  10. GLYCEOL [Concomitant]
     Indication: BRAIN OEDEMA
     Route: 042
     Dates: start: 20030814, end: 20030816
  11. DECADRON [Concomitant]
     Indication: INFLAMMATION
     Route: 042
     Dates: start: 20030813, end: 20030815
  12. LAC-B [Concomitant]
     Indication: DIARRHOEA
     Route: 048
     Dates: start: 20030818, end: 20030819
  13. PENTCILLIN [Concomitant]
     Indication: INFLUENZA
     Route: 042
     Dates: start: 20030819, end: 20030820
  14. CARBENIN [Concomitant]
     Indication: INFLUENZA
     Route: 042
     Dates: start: 20030820, end: 20030903
  15. CHLOROMYCETIN [Concomitant]
     Indication: INFLUENZA
     Route: 042
     Dates: start: 20030828, end: 20030920

REACTIONS (1)
  - MENINGITIS ASEPTIC [None]
